FAERS Safety Report 21162009 (Version 5)
Quarter: 2022Q4

REPORT INFORMATION
  Report Type: Spontaneous
  Country: JP (occurrence: JP)
  Receive Date: 20220802
  Receipt Date: 20221014
  Transmission Date: 20230113
  Serious: Yes (Other)
  Sender: FDA-Public Use
  Company Number: JP-OTSUKA-2022_038831

PATIENT
  Age: 78 Year
  Sex: Female

DRUGS (5)
  1. REXULTI [Suspect]
     Active Substance: BREXPIPRAZOLE
     Indication: Delusion
     Dosage: 2 MG/DAY, UNK
     Route: 048
     Dates: start: 20220722
  2. REXULTI [Suspect]
     Active Substance: BREXPIPRAZOLE
     Indication: Depressive symptom
  3. REXULTI [Suspect]
     Active Substance: BREXPIPRAZOLE
     Indication: Delusion
     Dosage: 1 MG/DAY, UNK
     Route: 048
     Dates: start: 20220711, end: 20220721
  4. REXULTI [Suspect]
     Active Substance: BREXPIPRAZOLE
     Indication: Depressive symptom
  5. CILOSTAZOL [Suspect]
     Active Substance: CILOSTAZOL
     Indication: Product used for unknown indication
     Dosage: 200 MG/DAY, UNK
     Route: 048
     Dates: start: 20220717, end: 20220719

REACTIONS (3)
  - Pelvic haemorrhage [Recovered/Resolved]
  - Headache [Unknown]
  - Off label use [Unknown]

NARRATIVE: CASE EVENT DATE: 20220701
